FAERS Safety Report 8979946 (Version 3)
Quarter: 2013Q1

REPORT INFORMATION
  Report Type: Spontaneous
  Country: US (occurrence: US)
  Receive Date: 20121221
  Receipt Date: 20130130
  Transmission Date: 20140127
  Serious: Yes (Other)
  Sender: FDA-Public Use
  Company Number: US-TEVA-376805USA

PATIENT
  Age: 53 Year
  Sex: Female

DRUGS (3)
  1. COPAXONE [Suspect]
     Indication: MULTIPLE SCLEROSIS
     Dates: start: 20121213, end: 20121218
  2. ACETAMINOPHEN [Concomitant]
  3. OMEPRAZOLE MAGNESIUM [Concomitant]

REACTIONS (2)
  - Jaundice [Recovered/Resolved]
  - Demyelination [Unknown]
